FAERS Safety Report 9239096 (Version 3)
Quarter: 2013Q2

REPORT INFORMATION
  Report Type: Spontaneous
  Country: AU (occurrence: AU)
  Receive Date: 20130418
  Receipt Date: 20130510
  Transmission Date: 20140414
  Serious: Yes (Death, Hospitalization, Other)
  Sender: FDA-Public Use
  Company Number: AU-B.I. PHARMACEUTICALS,INC./RIDGEFIELD-2013-AU-00464AU

PATIENT
  Age: 83 Year
  Sex: Male

DRUGS (2)
  1. PRADAXA [Suspect]
     Indication: CEREBROVASCULAR ACCIDENT PROPHYLAXIS
     Dosage: 220 MG
     Dates: start: 20110722
  2. PRADAXA [Suspect]
     Indication: ATRIAL FIBRILLATION

REACTIONS (10)
  - Respiratory failure [Fatal]
  - Diffuse large B-cell lymphoma [Unknown]
  - Pneumonia [Unknown]
  - Hyponatraemia [Unknown]
  - Dyspnoea [Unknown]
  - Cough [Unknown]
  - Exercise tolerance decreased [Unknown]
  - Electrolyte imbalance [Unknown]
  - Tachycardia [Unknown]
  - Hypotension [Unknown]
